FAERS Safety Report 15378672 (Version 1)
Quarter: 2018Q3

REPORT INFORMATION
  Report Type: Report from Study
  Country: US (occurrence: US)
  Receive Date: 20180913
  Receipt Date: 20180913
  Transmission Date: 20181010
  Serious: Yes (Other)
  Sender: FDA-Public Use
  Company Number: US-PFIZER INC-2018348893

PATIENT
  Age: 75 Year
  Sex: Male

DRUGS (2)
  1. SUTENT [Suspect]
     Active Substance: SUNITINIB MALATE
     Dosage: 50 MG, CYCLIC [DAILY/2 WEEKS ON/1 WEEK OFF]
     Route: 048
     Dates: start: 20180823
  2. SUTENT [Suspect]
     Active Substance: SUNITINIB MALATE
     Indication: RENAL CELL CARCINOMA
     Dosage: UNK, CYCLIC [FOR 4 WEEKS ON, 2 WEEKS OFF]
     Route: 048
     Dates: start: 20180719

REACTIONS (6)
  - Blood creatinine increased [Unknown]
  - Fatigue [Unknown]
  - Drug dose omission [Unknown]
  - Eye haemorrhage [Recovering/Resolving]
  - Nasal discomfort [Unknown]
  - Decreased appetite [Unknown]

NARRATIVE: CASE EVENT DATE: 2018
